FAERS Safety Report 15614370 (Version 1)
Quarter: 2018Q4

REPORT INFORMATION
  Report Type: Spontaneous
  Country: US (occurrence: US)
  Receive Date: 20181113
  Receipt Date: 20181113
  Transmission Date: 20190205
  Serious: No
  Sender: FDA-Public Use
  Company Number: US-BAUSCH-BL-2018-030220

PATIENT
  Age: 74 Year
  Sex: Female

DRUGS (2)
  1. TIMOPTIC [Suspect]
     Active Substance: TIMOLOL MALEATE
     Indication: MACULAR DEGENERATION
     Route: 047
     Dates: start: 20181024, end: 20181029
  2. TIMOPTIC [Suspect]
     Active Substance: TIMOLOL MALEATE
     Dosage: DOSE DECREASED, IN THE MORNING
     Route: 047
     Dates: start: 20181030

REACTIONS (4)
  - Diarrhoea [Unknown]
  - Dehydration [Unknown]
  - Eye irritation [Unknown]
  - Muscle spasms [Unknown]

NARRATIVE: CASE EVENT DATE: 201810
